FAERS Safety Report 6543654-6 (Version None)
Quarter: 2010Q1

REPORT INFORMATION
  Report Type: 
  Country: None (occurrence: None)
  Receive Date: 20100120
  Receipt Date: 20100118
  Transmission Date: 20100710
  Serious: Yes (Other)
  Sender: FDA-Public Use
  Company Number: ES-MERCK-1001ESP00012

PATIENT
  Age: 39 Year
  Sex: Female

DRUGS (1)
  1. MAXALT [Suspect]
     Indication: MIGRAINE
     Dosage: TAKING AS NEEDED, IN TOTAL TOOK 4 TABLETS
     Route: 048
     Dates: start: 20090901, end: 20090901

REACTIONS (1)
  - GALACTORRHOEA [None]
